FAERS Safety Report 7944599-7 (Version None)
Quarter: 2011Q4

REPORT INFORMATION
  Report Type: 
  Country: None (occurrence: None)
  Receive Date: 20111129
  Receipt Date: 20111117
  Transmission Date: 20120403
  Serious: Yes (Life-Threatening, Hospitalization)
  Sender: FDA-Public Use
  Company Number: DE-JNJFOC-20100308161

PATIENT
  Sex: Male
  Weight: 103 kg

DRUGS (15)
  1. PENTASA [Concomitant]
     Indication: COLITIS ULCERATIVE
     Route: 048
     Dates: start: 20090901
  2. SIMVASTATIN [Concomitant]
     Route: 048
     Dates: start: 20020101
  3. PANTOPRAZOLE SODIUM [Concomitant]
     Route: 048
     Dates: start: 20091201
  4. TRAMADOL HYDROCHLORIDE [Concomitant]
     Dates: start: 20091201
  5. GOLIMUMAB [Suspect]
     Route: 058
  6. BISOPROLOL FUMARATE [Concomitant]
     Route: 048
     Dates: start: 20020101
  7. GOLIMUMAB [Suspect]
     Route: 058
     Dates: start: 20090625
  8. GOLIMUMAB [Suspect]
     Route: 058
  9. PREDNISOLONE [Concomitant]
     Indication: COLITIS ULCERATIVE
     Route: 048
     Dates: start: 20091012
  10. GOLIMUMAB [Suspect]
     Indication: COLITIS ULCERATIVE
     Route: 058
     Dates: start: 20061216
  11. ENALAPRIL MALEATE [Concomitant]
     Route: 048
     Dates: start: 20020101
  12. ASPIRIN [Concomitant]
     Route: 048
     Dates: start: 20020101
  13. METAMIZOL [Concomitant]
     Route: 048
     Dates: start: 20091201
  14. ACTRAPHANE [Concomitant]
     Route: 058
     Dates: start: 20080801
  15. CALCIUM CARBONATE [Concomitant]
     Route: 048
     Dates: start: 20090801

REACTIONS (3)
  - COLITIS [None]
  - MYOCARDIAL INFARCTION [None]
  - SEPSIS [None]
